FAERS Safety Report 17452122 (Version 2)
Quarter: 2020Q2

REPORT INFORMATION
  Report Type: Spontaneous
  Country: US (occurrence: US)
  Receive Date: 20200224
  Receipt Date: 20200422
  Transmission Date: 20200713
  Serious: No
  Sender: FDA-Public Use
  Company Number: US-CELGENEUS-USA-20200206358

PATIENT
  Age: 61 Year
  Sex: Male
  Weight: 90.8 kg

DRUGS (4)
  1. VOLTAREN [Concomitant]
     Active Substance: DICLOFENAC SODIUM
     Indication: ARTHRALGIA
     Dosage: 2 MILLIGRAM
     Route: 061
     Dates: start: 20200204
  2. PRILOSEC [Concomitant]
     Active Substance: OMEPRAZOLE MAGNESIUM
     Indication: GASTRITIS
     Dosage: 20 MILLIGRAM
     Route: 065
     Dates: start: 20200204
  3. OTEZLA [Suspect]
     Active Substance: APREMILAST
     Indication: PSORIATIC ARTHROPATHY
     Route: 048
     Dates: start: 20200204
  4. OTEZLA [Suspect]
     Active Substance: APREMILAST
     Dosage: 60 MILLIGRAM
     Route: 048
     Dates: start: 2020

REACTIONS (3)
  - Nausea [Unknown]
  - Weight decreased [Recovered/Resolved]
  - Diarrhoea [Recovered/Resolved]

NARRATIVE: CASE EVENT DATE: 20200218
